FAERS Safety Report 5925156-0 (Version None)
Quarter: 2008Q4

REPORT INFORMATION
  Report Type: 
  Country: None (occurrence: None)
  Receive Date: 20081021
  Receipt Date: 20081016
  Transmission Date: 20090506
  Serious: No
  Sender: FDA-Public Use
  Company Number: KR-EISAI MEDICAL RESEARCH-E2090-00552-CLI-KR

PATIENT
  Sex: Female
  Weight: 59 kg

DRUGS (8)
  1. ZONEGRAN [Suspect]
     Indication: EPILEPSY
     Route: 048
     Dates: start: 20080701, end: 20080707
  2. ZONEGRAN [Suspect]
     Route: 048
     Dates: start: 20080708, end: 20080714
  3. ZONEGRAN [Suspect]
     Route: 048
     Dates: start: 20080715, end: 20080721
  4. ZONEGRAN [Suspect]
     Route: 048
     Dates: start: 20080722, end: 20080820
  5. ZONEGRAN [Suspect]
     Route: 048
     Dates: start: 20080821, end: 20080903
  6. ZONEGRAN [Suspect]
     Route: 048
     Dates: start: 20080904, end: 20080917
  7. CARVEDILOL [Concomitant]
     Route: 048
     Dates: start: 20080701
  8. VALSARTAN AND HYDROCHLOROTHIAZIDE [Concomitant]
     Route: 048
     Dates: start: 20080701

REACTIONS (3)
  - DEPRESSED MOOD [None]
  - HALLUCINATION, VISUAL [None]
  - MENTAL IMPAIRMENT [None]
